FAERS Safety Report 6424926 (Version 2)
Quarter: 2012Q4

REPORT INFORMATION
  Report Type: 
  Country: US (occurrence: US)
  Receive Date: 20070921
  Receipt Date: 20120906
  Transmission Date: 20130627
  Serious: Yes (Hospitalization)
  Sender: FDA-Public Use
  Company Number: US-ABBOTT-07P-163-0417157-00

PATIENT
  Age: 59 None
  Sex: Female
  Weight: 84.44 kg

DRUGS (14)
  1. HUMIRA [Suspect]
     Indication: PSORIATIC ARTHROPATHY
     Dosage: Syringe
     Route: 058
  2. HUMIRA [Suspect]
     Dosage: Pen
     Route: 058
  3. METHOTREXATE [Suspect]
     Indication: PSORIATIC ARTHROPATHY
  4. NOVOLOG [Concomitant]
     Indication: TYPE 2 DIABETES MELLITUS
     Dosage: With each meal, 3 in 1 Day
     Route: 058
  5. LANTUS [Concomitant]
     Indication: TYPE 2 DIABETES MELLITUS
     Route: 058
  6. SMZ-TMP [Concomitant]
     Indication: ANTI-INFECTIVE THERAPY
     Dosage: 400/800 mg, 1in 2 Days,Every other night
     Route: 048
  7. LYRICA [Concomitant]
     Indication: NEURALGIA
     Route: 048
  8. NEXIUM [Concomitant]
     Indication: PRODUCT USED FOR UNKNOWN INDICATION
     Route: 048
  9. MAGNESIUM OXIDE [Concomitant]
     Indication: PRODUCT USED FOR UNKNOWN INDICATION
     Route: 048
  10. OSCAL D [Concomitant]
     Indication: PRODUCT USED FOR UNKNOWN INDICATION
     Route: 048
  11. MVI [Concomitant]
     Indication: PRODUCT USED FOR UNKNOWN INDICATION
     Route: 048
  12. FAMVIR [Concomitant]
     Indication: ORAL HERPES
     Dosage: 500 mg to 1000 mg, As required
     Route: 048
  13. OXYCODONE [Concomitant]
     Indication: PRODUCT USED FOR UNKNOWN INDICATION
     Dosage: 3 in 1 Day, As required
     Route: 048
  14. RAPAMUNE [Concomitant]
     Indication: PROPHYLAXIS AGAINST TRANSPLANT REJECTION
     Route: 048

REACTIONS (7)
  - Gastric varices haemorrhage [Recovered/Resolved]
  - Non-alcoholic steatohepatitis [Recovered/Resolved]
  - Drug ineffective [Not Recovered/Not Resolved]
  - Musculoskeletal stiffness [Unknown]
  - Pain [Unknown]
  - Device malfunction [Unknown]
  - PALPITITIONS [None]
